FAERS Safety Report 11309178 (Version 1)
Quarter: 2015Q3

REPORT INFORMATION
  Report Type: Spontaneous
  Country: JP (occurrence: JP)
  Receive Date: 20150724
  Receipt Date: 20150724
  Transmission Date: 20151125
  Serious: Yes (Other)
  Sender: FDA-Public Use
  Company Number: JP-PFIZER INC-2015243498

PATIENT
  Sex: Female

DRUGS (1)
  1. LYRICA [Suspect]
     Active Substance: PREGABALIN
     Indication: TOOTHACHE
     Dosage: 25 MG, 1 CAPSULE
     Route: 048

REACTIONS (3)
  - Fracture [Unknown]
  - Dizziness [Recovered/Resolved]
  - Fall [Unknown]
